FAERS Safety Report 8305966-5 (Version None)
Quarter: 2012Q2

REPORT INFORMATION
  Report Type: 
  Country: None (occurrence: None)
  Receive Date: 20120423
  Receipt Date: 20120419
  Transmission Date: 20120825
  Serious: Yes (Hospitalization)
  Sender: FDA-Public Use
  Company Number: US-ABBOTT-12P-163-0927701-00

PATIENT
  Age: 46 Year
  Sex: Female

DRUGS (3)
  1. HUMIRA [Suspect]
     Dates: start: 20120415
  2. HUMIRA [Suspect]
     Indication: CROHN'S DISEASE
     Dates: start: 20120318, end: 20120318
  3. HUMIRA [Suspect]
     Dates: start: 20120401, end: 20120401

REACTIONS (2)
  - DEPRESSION [None]
  - ADDISON'S DISEASE [None]
